FAERS Safety Report 4463005-0 (Version None)
Quarter: 2004Q3

REPORT INFORMATION
  Report Type: 
  Country: None (occurrence: None)
  Receive Date: 20040930
  Receipt Date: 20040913
  Transmission Date: 20050211
  Serious: Yes (Death, Hospitalization)
  Sender: FDA-Public Use
  Company Number: ZA-BRISTOL-MYERS SQUIBB COMPANY-12707733

PATIENT
  Age: 46 Year
  Sex: Female
  Weight: 83 kg

DRUGS (3)
  1. DIDANOSINE [Suspect]
     Dates: start: 20030810, end: 20040808
  2. EFAVIRENZ [Suspect]
     Dosage: NOCTE
     Dates: start: 20030810, end: 20040808
  3. STAVUDINE [Suspect]
     Dates: start: 20030810, end: 20040808

REACTIONS (2)
  - DEATH [None]
  - LACTIC ACIDOSIS [None]
